FAERS Safety Report 16666483 (Version 1)
Quarter: 2019Q3

REPORT INFORMATION
  Report Type: Spontaneous
  Country: FR (occurrence: FR)
  Receive Date: 20190805
  Receipt Date: 20190805
  Transmission Date: 20191004
  Serious: Yes (Death)
  Sender: FDA-Public Use
  Company Number: FR-TEVA-2019-FR-1087793

PATIENT
  Age: 76 Year
  Sex: Male
  Weight: 106 kg

DRUGS (2)
  1. CLOPIDOGREL (CHLORHYDRATE DE) [Suspect]
     Active Substance: CLOPIDOGREL HYDROCHLORIDE
     Indication: VASCULAR DISORDER PROPHYLAXIS
     Dosage: 75  MILLIGRAM
     Route: 048
     Dates: end: 201903
  2. HEPARINE SODIQUE [Suspect]
     Active Substance: HEPARIN SODIUM
     Indication: VASCULAR DISORDER PROPHYLAXIS
     Route: 041
     Dates: start: 20190311, end: 20190324

REACTIONS (2)
  - Haematuria [Fatal]
  - Gastrointestinal haemorrhage [Fatal]

NARRATIVE: CASE EVENT DATE: 20190311
